FAERS Safety Report 24207706 (Version 4)
Quarter: 2024Q4

REPORT INFORMATION
  Report Type: Report from Study
  Country: US (occurrence: US)
  Receive Date: 20240814
  Receipt Date: 20241024
  Transmission Date: 20250115
  Serious: No
  Sender: ACADIA PHARMACEUTICALS
  Company Number: US-ACADIA PHARMACEUTICALS INC.-ACA-2024-TRF-003805

PATIENT
  Sex: Female

DRUGS (3)
  1. DAYBUE [Suspect]
     Active Substance: TROFINETIDE
     Indication: Rett syndrome
     Dosage: 30 MILLILITER, BID
     Route: 048
  2. DAYBUE [Suspect]
     Active Substance: TROFINETIDE
     Dosage: 40 MILLILITER, BID
     Route: 048
     Dates: start: 20240722
  3. DAYBUE [Suspect]
     Active Substance: TROFINETIDE
     Dosage: 60 MILLILITER, BID
     Route: 048

REACTIONS (11)
  - Constipation [Recovered/Resolved]
  - Underdose [Not Recovered/Not Resolved]
  - Drug ineffective [Not Recovered/Not Resolved]
  - Gastrointestinal motility disorder [Not Recovered/Not Resolved]
  - Constipation [Not Recovered/Not Resolved]
  - Depressed mood [Not Recovered/Not Resolved]
  - Protrusion tongue [Not Recovered/Not Resolved]
  - Drooling [Not Recovered/Not Resolved]
  - Disturbance in attention [Not Recovered/Not Resolved]
  - Diarrhoea [Not Recovered/Not Resolved]
  - Diarrhoea [Not Recovered/Not Resolved]
